FAERS Safety Report 18913439 (Version 1)
Quarter: 2021Q1

REPORT INFORMATION
  Report Type: Spontaneous
  Country: EG (occurrence: EG)
  Receive Date: 20210218
  Receipt Date: 20210218
  Transmission Date: 20210420
  Serious: Yes (Death)
  Sender: FDA-Public Use
  Company Number: NVSC2021EG037215

PATIENT
  Age: 13 Year
  Sex: Female

DRUGS (1)
  1. ZARZIO [Suspect]
     Active Substance: FILGRASTIM
     Indication: MUSCLE DISORDER
     Dosage: 30 MG, QD
     Route: 058

REACTIONS (3)
  - Neutropenia [Fatal]
  - Aplastic anaemia [Fatal]
  - Product use in unapproved indication [Unknown]
